FAERS Safety Report 19111464 (Version 1)
Quarter: 2021Q2

REPORT INFORMATION
  Report Type: Spontaneous
  Country: US (occurrence: US)
  Receive Date: 20210409
  Receipt Date: 20210409
  Transmission Date: 20210717
  Serious: Yes (Death)
  Sender: FDA-Public Use
  Company Number: None

PATIENT
  Age: 43 Year
  Sex: Female
  Weight: 99.5 kg

DRUGS (1)
  1. ASPIRIN. [Suspect]
     Active Substance: ASPIRIN
     Dates: end: 20210208

REACTIONS (9)
  - Tricuspid valve incompetence [None]
  - Parosmia [None]
  - Anaemia [None]
  - Cardiac arrest [None]
  - COVID-19 [None]
  - Taste disorder [None]
  - Mitral valve incompetence [None]
  - Blood iron decreased [None]
  - Cardiac hypertrophy [None]

NARRATIVE: CASE EVENT DATE: 20210209
